FAERS Safety Report 9949250 (Version 1)
Quarter: 2014Q1

REPORT INFORMATION
  Report Type: Report from Study
  Country: PE (occurrence: PE)
  Receive Date: 20140304
  Receipt Date: 20140304
  Transmission Date: 20141002
  Serious: Yes (Death)
  Sender: FDA-Public Use
  Company Number: PE-ROCHE-1358385

PATIENT
  Age: 12 Year
  Sex: Male

DRUGS (1)
  1. PULMOZYME [Suspect]
     Indication: CYSTIC FIBROSIS
     Route: 048
     Dates: start: 20120212, end: 20140202

REACTIONS (1)
  - Death [Fatal]
